FAERS Safety Report 8524182-5 (Version None)
Quarter: 2012Q3

REPORT INFORMATION
  Report Type: 
  Country: None (occurrence: None)
  Receive Date: 20120720
  Receipt Date: 20120706
  Transmission Date: 20120928
  Serious: Yes (Life-Threatening)
  Sender: FDA-Public Use
  Company Number: JP-PFIZER INC-2012111410

PATIENT
  Age: 67 Year
  Sex: Female
  Weight: 42 kg

DRUGS (25)
  1. DEPAKENE [Suspect]
     Indication: CONVULSION
     Dosage: 400 MG (8ML) DAILY
     Route: 045
     Dates: start: 20120413, end: 20120507
  2. ACETAMINOPHEN [Suspect]
     Indication: ANTIPYRESIS
     Dosage: 0.4 MG, AS NEEDED
     Route: 045
     Dates: start: 20120101, end: 20120507
  3. ALFAROL [Suspect]
     Indication: OSTEOPOROSIS
     Dosage: 0.5 UG (1ML) A DAY
     Route: 045
     Dates: start: 20120419, end: 20120507
  4. MEROPENEM [Suspect]
     Dosage: 2 G, DAILY
     Route: 042
     Dates: start: 20120427, end: 20120506
  5. AMPICILLIN [Concomitant]
     Dosage: 1 G, 2X/DAY
     Dates: start: 20120217
  6. CLINDAMYCIN HCL [Suspect]
     Indication: MUSCLE ABSCESS
  7. LENDORMIN [Suspect]
     Indication: INSOMNIA
     Dosage: 0.25 MG, AS NEEDED
     Route: 045
     Dates: start: 20120421
  8. VANCOMYCIN HYCHLORIDE [Suspect]
     Indication: MENINGITIS
     Dosage: 0.25 G, 2X/WEEK
     Route: 042
     Dates: start: 20120207, end: 20120215
  9. ACETAMINOPHEN [Suspect]
     Indication: ANALGESIC THERAPY
  10. CEFAZOLIN SODIUM [Suspect]
     Indication: PROPHYLAXIS AGAINST DIARRHOEA
     Dosage: 1 G, 3X/DAY
     Route: 045
     Dates: start: 20120419, end: 20120507
  11. RIFAMPICIN [Concomitant]
     Dosage: 600 MG DAILY
     Dates: start: 20120307
  12. PYRAZINAMIDE [Concomitant]
     Dosage: 1 G, UNK
     Dates: start: 20120316
  13. ETHAMBUTOL [Concomitant]
     Dosage: 500 MG, UNK
     Dates: start: 20120316
  14. MEROPENEM [Suspect]
     Indication: MENINGITIS
     Dosage: 0.5 G, DAILY
     Route: 042
     Dates: start: 20120117, end: 20120216
  15. VANCOMYCIN [Suspect]
     Indication: MUSCLE ABSCESS
     Dosage: 0.25 MG, 2X/DAY, EVERY OTHER DAY
     Route: 042
     Dates: start: 20120307, end: 20120409
  16. PREDNISOLONE [Concomitant]
     Indication: ASTHMA
     Dosage: 5 MG A DAY
     Route: 045
     Dates: start: 20120503, end: 20120507
  17. ISONIAZID [Concomitant]
     Dosage: 300 MG, DAILY
     Dates: start: 20120307
  18. AMBISOME [Suspect]
     Indication: INFECTION
     Dosage: 100 MG A DAY
     Route: 042
     Dates: start: 20120425, end: 20120504
  19. VANCOMYCIN [Suspect]
     Dosage: 0.25 G, 2X/WEEK
     Dates: start: 20120427, end: 20120506
  20. LANSOPRAZOLE [Suspect]
     Indication: GASTRIC ULCER
     Dosage: 30 MG A DAY
     Route: 045
     Dates: start: 20120321, end: 20120507
  21. PRODIF [Concomitant]
     Indication: SYSTEMIC CANDIDA
     Dosage: UNK
     Dates: start: 20120411, end: 20120424
  22. CLINDAMYCIN HCL [Suspect]
     Indication: MENINGITIS
     Dosage: 1200 G, 2X/DAY
     Route: 042
     Dates: start: 20120411, end: 20120506
  23. MEROPENEM [Suspect]
     Indication: MUSCLE ABSCESS
     Dosage: 1 G, DAILY
     Route: 042
     Dates: start: 20120411, end: 20120420
  24. ALBUMIN TANNATE [Suspect]
     Indication: PROPHYLAXIS AGAINST DIARRHOEA
     Dosage: 1 G, AS NEEDED
     Route: 045
     Dates: start: 20120427, end: 20120507
  25. CEFTRIAXONE [Concomitant]
     Dosage: 2 G, 2X/DAY
     Dates: start: 20120217

REACTIONS (1)
  - TOXIC EPIDERMAL NECROLYSIS [None]
